FAERS Safety Report 8805425 (Version 2)
Quarter: 2015Q1

REPORT INFORMATION
  Report Type: Report from Study
  Country: US (occurrence: US)
  Receive Date: 20120924
  Receipt Date: 20150323
  Transmission Date: 20150721
  Serious: Yes (Death)
  Sender: FDA-Public Use
  Company Number: US-ROCHE-1123315

PATIENT
  Sex: Male

DRUGS (34)
  1. AUGMENTIN [Concomitant]
     Active Substance: AMOXICILLIN\CLAVULANATE POTASSIUM
     Route: 065
  2. 5-FLUOROURACIL [Suspect]
     Active Substance: FLUOROURACIL
     Indication: PRODUCT USED FOR UNKNOWN INDICATION
     Route: 042
  3. ZOLOFT [Concomitant]
     Active Substance: SERTRALINE HYDROCHLORIDE
  4. GEMZAR [Concomitant]
     Active Substance: GEMCITABINE HYDROCHLORIDE
     Route: 042
  5. DECADRON [Concomitant]
     Active Substance: DEXAMETHASONE
     Route: 048
  6. FENTANYL. [Concomitant]
     Active Substance: FENTANYL
     Route: 065
  7. FENTANYL. [Concomitant]
     Active Substance: FENTANYL
     Route: 065
  8. ROCEPHIN [Concomitant]
     Active Substance: CEFTRIAXONE SODIUM
     Route: 065
  9. OXYCONTIN [Concomitant]
     Active Substance: OXYCODONE HYDROCHLORIDE
     Route: 065
  10. HEPARIN [Concomitant]
     Active Substance: HEPARIN SODIUM
     Route: 065
  11. AVASTIN [Suspect]
     Active Substance: BEVACIZUMAB
     Indication: RENAL CANCER
     Dosage: RECEIVED ONLY ONE DOSE
     Route: 042
  12. NORVASC [Concomitant]
     Active Substance: AMLODIPINE BESYLATE
  13. VITAMIN C [Concomitant]
     Active Substance: ASCORBIC ACID
  14. ALOXI [Concomitant]
     Active Substance: PALONOSETRON HYDROCHLORIDE
     Route: 065
  15. ANZEMET [Concomitant]
     Active Substance: DOLASETRON MESYLATE
     Route: 042
  16. BENADRYL [Concomitant]
     Active Substance: DIPHENHYDRAMINE HYDROCHLORIDE
     Route: 065
  17. MEGACE [Concomitant]
     Active Substance: MEGESTROL ACETATE
  18. ZOFRAN [Concomitant]
     Active Substance: ONDANSETRON HYDROCHLORIDE
  19. DURAGESIC [Concomitant]
     Active Substance: FENTANYL
     Route: 065
  20. TAXOTERE [Concomitant]
     Active Substance: DOCETAXEL
     Route: 065
  21. TARCEVA [Concomitant]
     Active Substance: ERLOTINIB HYDROCHLORIDE
     Route: 048
  22. ZANTAC [Concomitant]
     Active Substance: RANITIDINE HYDROCHLORIDE
  23. OXYCODONE [Concomitant]
     Active Substance: OXYCODONE
  24. TEMODAR [Suspect]
     Active Substance: TEMOZOLOMIDE
     Indication: PRODUCT USED FOR UNKNOWN INDICATION
     Route: 065
  25. DECADRON [Concomitant]
     Active Substance: DEXAMETHASONE
     Route: 065
  26. DECADRON [Concomitant]
     Active Substance: DEXAMETHASONE
     Route: 042
  27. FENTANYL. [Concomitant]
     Active Substance: FENTANYL
     Route: 065
  28. PROCRIT [Concomitant]
     Active Substance: ERYTHROPOIETIN
     Route: 058
  29. ARANESP [Concomitant]
     Active Substance: DARBEPOETIN ALFA
     Route: 058
  30. OXYCONTIN [Concomitant]
     Active Substance: OXYCODONE HYDROCHLORIDE
     Route: 048
  31. AVASTIN [Suspect]
     Active Substance: BEVACIZUMAB
     Indication: MALIGNANT URINARY TRACT NEOPLASM
  32. LEUCOVORIN [Suspect]
     Active Substance: LEUCOVORIN
     Indication: PRODUCT USED FOR UNKNOWN INDICATION
     Route: 042
  33. FLOMAX (UNITED STATES) [Concomitant]
  34. DEXAMETHASONE. [Concomitant]
     Active Substance: DEXAMETHASONE

REACTIONS (39)
  - Flank pain [Unknown]
  - Diarrhoea [Recovered/Resolved]
  - Nocturia [Unknown]
  - Aortic aneurysm [Unknown]
  - Off label use [Unknown]
  - Disease progression [Unknown]
  - Aortic stenosis [Unknown]
  - Dysuria [Unknown]
  - Abdominal distension [Unknown]
  - Erythema [Unknown]
  - Pleural effusion [Unknown]
  - Oedema peripheral [Unknown]
  - Headache [Unknown]
  - Facial paresis [Unknown]
  - Chest pain [Unknown]
  - Death [Fatal]
  - Fatigue [Unknown]
  - Confusional state [Unknown]
  - Jaundice [Unknown]
  - Aortic calcification [Unknown]
  - Blister [Unknown]
  - Aortic arteriosclerosis [Unknown]
  - Anorectal disorder [Recovered/Resolved]
  - Breath sounds abnormal [Unknown]
  - Dyspnoea [Unknown]
  - Insomnia [Unknown]
  - Arteriosclerosis coronary artery [Unknown]
  - Agitation [Unknown]
  - Thrombocytopenia [Unknown]
  - Dizziness [Unknown]
  - Decreased appetite [Unknown]
  - Nausea [Unknown]
  - Ataxia [Unknown]
  - Weight decreased [Unknown]
  - Somnolence [Unknown]
  - Constipation [Unknown]
  - Ascites [Unknown]
  - Atelectasis [Unknown]
  - Pleural fibrosis [Unknown]
